FAERS Safety Report 8954281 (Version 2)
Quarter: 2013Q3

REPORT INFORMATION
  Report Type: Report from Study
  Country: AU (occurrence: AU)
  Receive Date: 20121207
  Receipt Date: 20130824
  Transmission Date: 20140515
  Serious: Yes (Other)
  Sender: FDA-Public Use
  Company Number: AU-ROCHE-1102419

PATIENT
  Age: 66 Year
  Sex: Female
  Weight: 98 kg

DRUGS (4)
  1. ACTEMRA [Suspect]
     Indication: RHEUMATOID ARTHRITIS
     Route: 042
     Dates: start: 20110624, end: 20121023
  2. COVERSYL [Concomitant]
     Indication: HYPERTENSION
     Route: 048
  3. MINIPRESS [Concomitant]
     Indication: HYPERTENSION
     Route: 048
  4. THYROXINE [Concomitant]
     Indication: THYROXINE DECREASED
     Route: 048

REACTIONS (7)
  - Joint injury [Unknown]
  - Meniscus injury [Unknown]
  - Bone fragmentation [Unknown]
  - Localised infection [Recovered/Resolved]
  - Oral infection [Unknown]
  - Urinary tract infection [Unknown]
  - Furuncle [Recovered/Resolved]
